FAERS Safety Report 23652857 (Version 2)
Quarter: 2025Q2

REPORT INFORMATION
  Report Type: Spontaneous
  Country: BR (occurrence: BR)
  Receive Date: 20240320
  Receipt Date: 20250407
  Transmission Date: 20250717
  Serious: Yes (Other)
  Sender: ASTELLAS
  Company Number: BR-ASTELLAS-2024US008112

PATIENT
  Age: 73 Year
  Sex: Male

DRUGS (3)
  1. XTANDI [Suspect]
     Active Substance: ENZALUTAMIDE
     Indication: Neoplasm malignant
     Route: 065
     Dates: start: 20230710, end: 202402
  2. XTANDI [Suspect]
     Active Substance: ENZALUTAMIDE
     Route: 065
     Dates: start: 202402, end: 202402
  3. GOSERELIN [Concomitant]
     Active Substance: GOSERELIN
     Indication: Neoplasm malignant
     Route: 065
     Dates: start: 20230710, end: 202402

REACTIONS (5)
  - Prostate cancer recurrent [Unknown]
  - Fatigue [Unknown]
  - Insomnia [Unknown]
  - Dizziness [Unknown]
  - Blood pressure increased [Unknown]
